FAERS Safety Report 8958771 (Version 1)
Quarter: 2012Q4

REPORT INFORMATION
  Report Type: Spontaneous
  Country: US (occurrence: None)
  Receive Date: 20121206
  Receipt Date: 20121206
  Transmission Date: 20130627
  Serious: Yes (Life-Threatening, Hospitalization)
  Sender: FDA-Public Use
  Company Number: None

PATIENT
  Age: 82 Year
  Sex: Female
  Weight: 74.84 kg

DRUGS (2)
  1. VYTORIN [Suspect]
     Indication: HIGH CHOLESTEROL
     Dates: start: 20100101, end: 20121203
  2. VYTORIN [Suspect]
     Indication: TRIGLYCERIDES HIGH
     Dates: start: 20100101, end: 20121203

REACTIONS (1)
  - Pancreatitis acute [None]
